FAERS Safety Report 4589153-2 (Version None)
Quarter: 2005Q1

REPORT INFORMATION
  Report Type: 
  Country: None (occurrence: None)
  Receive Date: 20050215
  Receipt Date: 20050215
  Transmission Date: 20050727
  Serious: Yes (Life-Threatening)
  Sender: FDA-Public Use
  Company Number: None

PATIENT
  Age: 44 Year
  Sex: Female
  Weight: 113.3993 kg

DRUGS (1)
  1. SUCCINLYCHOLINE 200MG/10ML ABBOTT LABORATORIES [Suspect]
     Indication: ELECTROCONVULSIVE THERAPY
     Dosage: 60 MG ONCE INTRAVENOUS
     Route: 042
     Dates: start: 20050210, end: 20050210

REACTIONS (3)
  - CONVULSION [None]
  - DRUG EFFECT DECREASED [None]
  - PHARMACEUTICAL PRODUCT COMPLAINT [None]
